FAERS Safety Report 12726417 (Version 1)
Quarter: 2016Q3

REPORT INFORMATION
  Report Type: Spontaneous
  Country: US (occurrence: US)
  Receive Date: 20160908
  Receipt Date: 20160908
  Transmission Date: 20161109
  Serious: Yes (Death, Other)
  Sender: FDA-Public Use
  Company Number: US-MYLANLABS-2016M1038054

PATIENT

DRUGS (3)
  1. ERYTHROMYCIN. [Concomitant]
     Active Substance: ERYTHROMYCIN
  2. ETOMIDATE. [Suspect]
     Active Substance: ETOMIDATE
     Indication: ANAESTHESIA
     Dosage: 2 MG/ML, ONCE
     Route: 042
     Dates: start: 20160728, end: 20160728
  3. MESTINON [Concomitant]
     Active Substance: PYRIDOSTIGMINE BROMIDE
     Dosage: 60 MG, PRN

REACTIONS (1)
  - Cardiac arrest [Fatal]

NARRATIVE: CASE EVENT DATE: 20160728
